FAERS Safety Report 5075379-0 (Version None)
Quarter: 2006Q3

REPORT INFORMATION
  Report Type: 
  Country: None (occurrence: None)
  Receive Date: 20060714
  Receipt Date: 20060317
  Transmission Date: 20061208
  Serious: No
  Sender: FDA-Public Use
  Company Number: 2006SP001276

PATIENT
  Age: 39 Year
  Sex: Female
  Weight: 86.1834 kg

DRUGS (5)
  1. LUNESTA [Suspect]
     Indication: INSOMNIA
     Dosage: 3 MG;1X;ORAL
     Route: 048
     Dates: start: 20060316, end: 20060316
  2. LUNESTA [Suspect]
     Indication: INSOMNIA
     Dosage: 3 MG;1X;ORAL
     Route: 048
  3. AMBIEN [Concomitant]
  4. TETRACYCLINE [Concomitant]
  5. WELLBUTRIN [Concomitant]

REACTIONS (2)
  - DYSGEUSIA [None]
  - INSOMNIA [None]
